FAERS Safety Report 6400010-9 (Version None)
Quarter: 2009Q4

REPORT INFORMATION
  Report Type: 
  Country: None (occurrence: None)
  Receive Date: 20091008
  Receipt Date: 20091008
  Transmission Date: 20100525
  Serious: Yes (Other)
  Sender: FDA-Public Use
  Company Number: None

PATIENT
  Age: 36 Year
  Sex: Female
  Weight: 73.4827 kg

DRUGS (5)
  1. EFFEXOR [Suspect]
     Indication: ANXIETY
     Dates: start: 20010501, end: 20080310
  2. EFFEXOR [Suspect]
     Indication: DEPRESSION
     Dates: start: 20010501, end: 20080310
  3. EFFEXOR [Suspect]
     Indication: FIBROMYALGIA
     Dates: start: 20010501, end: 20080310
  4. LEXAPRO [Suspect]
  5. ZOLOFT [Suspect]

REACTIONS (7)
  - ANTISOCIAL BEHAVIOUR [None]
  - DISTURBANCE IN ATTENTION [None]
  - FEELING ABNORMAL [None]
  - HYPERHIDROSIS [None]
  - INSOMNIA [None]
  - IRRITABILITY [None]
  - PHOBIA [None]
